FAERS Safety Report 15367471 (Version 1)
Quarter: 2018Q3

REPORT INFORMATION
  Report Type: Spontaneous
  Country: IE (occurrence: IE)
  Receive Date: 20180910
  Receipt Date: 20180910
  Transmission Date: 20181010
  Serious: Yes (Hospitalization, Other)
  Sender: FDA-Public Use
  Company Number: IE-SA-2018SA243622

PATIENT
  Age: 62 Year
  Sex: Female

DRUGS (2)
  1. PLAVIX [Suspect]
     Active Substance: CLOPIDOGREL BISULFATE
     Indication: ANTICOAGULANT THERAPY
     Route: 048
  2. APIXABAN [Suspect]
     Active Substance: APIXABAN
     Indication: ANTICOAGULANT THERAPY
     Route: 048

REACTIONS (10)
  - Asthenia [Unknown]
  - Pallor [Unknown]
  - Splenic haematoma [Unknown]
  - Dizziness [Unknown]
  - Abdominal pain [Unknown]
  - Atrial fibrillation [Unknown]
  - Gastrointestinal wall thickening [Unknown]
  - Vomiting [Unknown]
  - Hypotension [Unknown]
  - Splenic rupture [Recovered/Resolved]
